FAERS Safety Report 16958127 (Version 1)
Quarter: 2019Q4

REPORT INFORMATION
  Report Type: Spontaneous
  Country: CA (occurrence: CA)
  Receive Date: 20191024
  Receipt Date: 20191024
  Transmission Date: 20200122
  Serious: Yes (Death)
  Sender: FDA-Public Use
  Company Number: CA-CELGENEUS-CAN-20191006230

PATIENT
  Sex: Female

DRUGS (1)
  1. AZACITIDINE. [Suspect]
     Active Substance: AZACITIDINE
     Indication: LEUKAEMIA
     Route: 058
     Dates: start: 2016, end: 201704

REACTIONS (3)
  - Hepatic cirrhosis [Fatal]
  - Death [Fatal]
  - Ascites [Fatal]

NARRATIVE: CASE EVENT DATE: 201704
